FAERS Safety Report 10989125 (Version 1)
Quarter: 2015Q2

REPORT INFORMATION
  Report Type: Spontaneous
  Country: CH (occurrence: CH)
  Receive Date: 20150406
  Receipt Date: 20150406
  Transmission Date: 20150821
  Serious: Yes (Death, Other)
  Sender: FDA-Public Use
  Company Number: CH-CIPLA LTD.-2015CH02577

PATIENT

DRUGS (5)
  1. ETOPOSIDE. [Suspect]
     Active Substance: ETOPOSIDE
     Indication: NEUROBLASTOMA
  2. MELPHALAN [Suspect]
     Active Substance: MELPHALAN
     Indication: NEUROBLASTOMA
  3. CARBOPLATIN. [Suspect]
     Active Substance: CARBOPLATIN
     Indication: NEUROBLASTOMA
  4. AMIKACIN [Suspect]
     Active Substance: AMIKACIN
  5. VANCOMYCIN [Suspect]
     Active Substance: VANCOMYCIN

REACTIONS (9)
  - Stomatitis [Unknown]
  - Bone marrow failure [Unknown]
  - Renal failure [Unknown]
  - Gastrointestinal haemorrhage [Unknown]
  - Pyrexia [Unknown]
  - Tubulointerstitial nephritis [Unknown]
  - Coma [Unknown]
  - Hyperammonaemia [Fatal]
  - Seizure [Unknown]
